FAERS Safety Report 16839505 (Version 1)
Quarter: 2019Q4

REPORT INFORMATION
  Report Type: Spontaneous
  Country: US (occurrence: US)
  Receive Date: 20190922
  Receipt Date: 20190922
  Transmission Date: 20200122
  Serious: No
  Sender: FDA-Public Use
  Company Number: None

PATIENT
  Age: 41 Year
  Sex: Female
  Weight: 77.4 kg

DRUGS (15)
  1. ASTAXANTHIN [Concomitant]
     Active Substance: ASTAXANTHIN
  2. BIOTIN [Concomitant]
     Active Substance: BIOTIN
  3. IPRATROPIUM BROMIDE NASAL SOLUTION 0.06% [Suspect]
     Active Substance: IPRATROPIUM BROMIDE
     Indication: RESPIRATORY TRACT INFECTION VIRAL
     Dosage: ?          QUANTITY:2 SPRAY(S);?
     Route: 055
     Dates: start: 20190920
  4. CALCIUM/MAGNESIUM/ZINC [Concomitant]
  5. PROBIOTICS [Concomitant]
     Active Substance: PROBIOTICS NOS
  6. PANTOPROZOLE [Concomitant]
  7. MULTIVITAMIN [Concomitant]
     Active Substance: VITAMINS
  8. ASHWAGHANDA [Concomitant]
  9. TRAZODONE [Concomitant]
     Active Substance: TRAZODONE HYDROCHLORIDE
  10. ALLEGRA [Concomitant]
     Active Substance: FEXOFENADINE HYDROCHLORIDE
  11. OMEGA 3 [Concomitant]
     Active Substance: OMEGA-3 FATTY ACIDS
  12. VITAMIN D [Concomitant]
     Active Substance: VITAMIN D NOS
  13. VITAMIN C [Concomitant]
     Active Substance: ASCORBIC ACID
  14. RHODIOLA [Concomitant]
     Active Substance: HERBALS
  15. GLUTAMININE [Concomitant]

REACTIONS (9)
  - Incorrect route of product administration [None]
  - Extrasystoles [None]
  - Palpitations [None]
  - Fatigue [None]
  - Upper-airway cough syndrome [None]
  - Headache [None]
  - Nausea [None]
  - Insomnia [None]
  - Dysgeusia [None]

NARRATIVE: CASE EVENT DATE: 20190921
